FAERS Safety Report 17589746 (Version 29)
Quarter: 2025Q2

REPORT INFORMATION
  Report Type: Report from Study
  Country: US (occurrence: US)
  Receive Date: 20200327
  Receipt Date: 20250411
  Transmission Date: 20250716
  Serious: Yes (Other)
  Sender: TAKEDA
  Company Number: US-SHIRE-US202011435

PATIENT
  Age: 62 Year
  Sex: Female
  Weight: 48 kg

DRUGS (47)
  1. HUMAN IMMUNOGLOBULIN G [Suspect]
     Active Substance: HUMAN IMMUNOGLOBULIN G
     Indication: Immunodeficiency common variable
     Dosage: 25 GRAM, Q4WEEKS
     Dates: start: 20190103
  2. HUMAN IMMUNOGLOBULIN G [Suspect]
     Active Substance: HUMAN IMMUNOGLOBULIN G
     Dosage: 20 GRAM, Q4WEEKS
     Dates: start: 20190228
  3. HUMAN IMMUNOGLOBULIN G [Suspect]
     Active Substance: HUMAN IMMUNOGLOBULIN G
     Dosage: 25 GRAM, Q4WEEKS
     Dates: start: 20190301
  4. HUMAN IMMUNOGLOBULIN G [Suspect]
     Active Substance: HUMAN IMMUNOGLOBULIN G
     Dosage: 30 GRAM, Q4WEEKS
     Dates: start: 20190403
  5. HUMAN IMMUNOGLOBULIN G [Suspect]
     Active Substance: HUMAN IMMUNOGLOBULIN G
     Dosage: 20 GRAM, Q4WEEKS
  6. HUMAN IMMUNOGLOBULIN G [Suspect]
     Active Substance: HUMAN IMMUNOGLOBULIN G
     Dosage: 25 GRAM, Q4WEEKS
  7. HUMAN IMMUNOGLOBULIN G [Suspect]
     Active Substance: HUMAN IMMUNOGLOBULIN G
     Dosage: 30 GRAM, Q4WEEKS
  8. HUMAN IMMUNOGLOBULIN G [Suspect]
     Active Substance: HUMAN IMMUNOGLOBULIN G
     Dosage: UNK, MONTHLY
  9. HUMAN IMMUNOGLOBULIN G [Suspect]
     Active Substance: HUMAN IMMUNOGLOBULIN G
     Dosage: 35 GRAM, Q4WEEKS
  10. SOLU-MEDROL [Suspect]
     Active Substance: METHYLPREDNISOLONE SODIUM SUCCINATE
     Indication: Product used for unknown indication
  11. EPINEPHRINE [Concomitant]
     Active Substance: EPINEPHRINE
  12. ACETAMINOPHEN [Concomitant]
     Active Substance: ACETAMINOPHEN
  13. ALPRAZOLAM [Concomitant]
     Active Substance: ALPRAZOLAM
  14. TYLENOL [Concomitant]
     Active Substance: ACETAMINOPHEN
  15. SODIUM CHLORIDE [Concomitant]
     Active Substance: SODIUM CHLORIDE
  16. SODIUM CHLORIDE [Concomitant]
     Active Substance: SODIUM CHLORIDE
  17. VENLAFAXINE HCL [Concomitant]
     Active Substance: VENLAFAXINE HYDROCHLORIDE
  18. LIDOCAINE [Concomitant]
     Active Substance: LIDOCAINE
  19. TRAMADOL HCL [Concomitant]
     Active Substance: TRAMADOL HYDROCHLORIDE
  20. DIPHENHYDRAMINE HYDROCHLORIDE [Concomitant]
     Active Substance: DIPHENHYDRAMINE HYDROCHLORIDE
  21. ESTRADIOL [Concomitant]
     Active Substance: ESTRADIOL
  22. COLLAGEN [Concomitant]
     Active Substance: COLLAGEN
  23. DIPHENHYDRAMINE [Concomitant]
     Active Substance: DIPHENHYDRAMINE
  24. DEXTROSE\SODIUM CHLORIDE [Concomitant]
     Active Substance: DEXTROSE\SODIUM CHLORIDE
  25. MELOXICAM [Concomitant]
     Active Substance: MELOXICAM
  26. ESCITALOPRAM OXALATE [Concomitant]
     Active Substance: ESCITALOPRAM OXALATE
  27. VITAMIN D3 [Concomitant]
     Active Substance: CHOLECALCIFEROL
  28. VITAMIN C [Concomitant]
     Active Substance: ASCORBIC ACID
  29. ZINC [Concomitant]
     Active Substance: ZINC
  30. COCONUT OIL [Concomitant]
     Active Substance: COCONUT OIL
  31. Covid-19 vaccine [Concomitant]
  32. IBUPROFEN [Concomitant]
     Active Substance: IBUPROFEN
  33. HEPARIN [Concomitant]
     Active Substance: HEPARIN SODIUM
  34. CEFTRIAXONE [Concomitant]
     Active Substance: CEFTRIAXONE
  35. DULOXETINE [Concomitant]
     Active Substance: DULOXETINE
  36. VITAMIN K [Concomitant]
     Active Substance: PHYTONADIONE
  37. CALCIUM\CHOLECALCIFEROL [Concomitant]
     Active Substance: CALCIUM\CHOLECALCIFEROL
  38. HERBALS\MITRAGYNINE [Concomitant]
     Active Substance: HERBALS\MITRAGYNINE
  39. OXYCODONE HYDROCHLORIDE [Concomitant]
     Active Substance: OXYCODONE HYDROCHLORIDE
  40. DOCUSATE [Concomitant]
     Active Substance: DOCUSATE
  41. CELEBREX [Concomitant]
     Active Substance: CELECOXIB
  42. DOCUSATE SODIUM [Concomitant]
     Active Substance: DOCUSATE SODIUM
  43. AFRIN [Concomitant]
     Active Substance: OXYMETAZOLINE HYDROCHLORIDE
  44. EPINEPHRINE [Concomitant]
     Active Substance: EPINEPHRINE
  45. VITAMINS [Concomitant]
     Active Substance: VITAMINS
  46. FLONASE ALLERGY RELIEF [Concomitant]
     Active Substance: FLUTICASONE PROPIONATE
  47. WELLBUTRIN XL [Concomitant]
     Active Substance: BUPROPION HYDROCHLORIDE

REACTIONS (22)
  - Tension headache [Recovered/Resolved]
  - Musculoskeletal discomfort [Recovered/Resolved]
  - Arthritis [Unknown]
  - Confusional state [Unknown]
  - COVID-19 [Unknown]
  - Laryngitis [Unknown]
  - Weight decreased [Unknown]
  - Skin injury [Unknown]
  - Cystitis [Unknown]
  - Urinary tract infection [Unknown]
  - Weight increased [Unknown]
  - Skin papilloma [Unknown]
  - Respiratory tract infection [Not Recovered/Not Resolved]
  - Respiratory tract congestion [Unknown]
  - Sinusitis [Unknown]
  - Epistaxis [Unknown]
  - Diarrhoea [Unknown]
  - Headache [Unknown]
  - Product dose omission issue [Unknown]
  - Feeling abnormal [Unknown]
  - Throat tightness [Unknown]
  - Feeling hot [Unknown]

NARRATIVE: CASE EVENT DATE: 20211013
